FAERS Safety Report 24033663 (Version 1)
Quarter: 2024Q3

REPORT INFORMATION
  Report Type: Other
  Country: PL (occurrence: US)
  Receive Date: 20240701
  Receipt Date: 20240701
  Transmission Date: 20241016
  Serious: Yes (Other)
  Sender: BIONPHARMA
  Company Number: PL-Bion-013341

PATIENT
  Age: 53 Year
  Sex: Female

DRUGS (6)
  1. DEXAMETHASONE [Suspect]
     Active Substance: DEXAMETHASONE
     Indication: Hodgkin^s disease
  2. BENDAMUSTINE [Concomitant]
     Active Substance: BENDAMUSTINE
     Indication: Hodgkin^s disease
  3. GEMCITABINE [Concomitant]
     Active Substance: GEMCITABINE
     Indication: Hodgkin^s disease
  4. IFOSFAMIDE [Concomitant]
     Active Substance: IFOSFAMIDE
     Indication: Hodgkin^s disease
  5. VINORELBINE [Concomitant]
     Active Substance: VINORELBINE TARTRATE
     Indication: Hodgkin^s disease
  6. BENDAMUSTINE HYDROCHLORIDE [Concomitant]
     Active Substance: BENDAMUSTINE HYDROCHLORIDE
     Indication: Hodgkin^s disease

REACTIONS (6)
  - Congenital aplasia [Unknown]
  - Febrile neutropenia [Unknown]
  - Bacteraemia [Unknown]
  - Gastrointestinal inflammation [Unknown]
  - Clostridium difficile infection [Unknown]
  - Candida infection [Unknown]
